FAERS Safety Report 9574863 (Version 1)
Quarter: 2013Q4

REPORT INFORMATION
  Report Type: Spontaneous
  Country: GB (occurrence: GB)
  Receive Date: 20131001
  Receipt Date: 20131001
  Transmission Date: 20140711
  Serious: Yes (Disabling, Other)
  Sender: FDA-Public Use
  Company Number: GB-MYLANLABS-2013S1021052

PATIENT
  Age: 68 Year
  Sex: Male
  Weight: 70.6 kg

DRUGS (7)
  1. BISOPROLOL [Suspect]
     Indication: HYPERTENSION
     Route: 048
     Dates: start: 20130123, end: 20130313
  2. BISOPROLOL [Suspect]
     Indication: HYPERTENSION
     Route: 048
     Dates: start: 20130313, end: 20130505
  3. AMLODIPINE [Concomitant]
     Indication: HYPERTENSION
     Route: 048
  4. FEXOFENADINE [Concomitant]
     Indication: PSORIASIS
     Route: 048
  5. LANSOPRAZOLE [Concomitant]
     Indication: BARRETT^S OESOPHAGUS
     Route: 048
  6. LOSARTAN [Concomitant]
     Indication: HYPERTENSION
     Route: 048
  7. SIMVASTATIN [Concomitant]
     Indication: HYPERCHOLESTEROLAEMIA
     Route: 048

REACTIONS (1)
  - Angina pectoris [Recovered/Resolved]
